FAERS Safety Report 11101632 (Version 1)
Quarter: 2015Q2

REPORT INFORMATION
  Report Type: Spontaneous
  Country: US (occurrence: US)
  Receive Date: 20150508
  Receipt Date: 20150508
  Transmission Date: 20150821
  Serious: Yes (Death, Hospitalization, Other)
  Sender: FDA-Public Use
  Company Number: PHHY2015US052915

PATIENT
  Age: 67 Year
  Sex: Male

DRUGS (3)
  1. DOCUSATE [Concomitant]
     Active Substance: DOCUSATE
     Indication: NEURALGIA
     Route: 065
  2. NORTRIPTYLINE [Suspect]
     Active Substance: NORTRIPTYLINE
     Indication: NEURALGIA
     Route: 065
  3. CITALOPRAM [Suspect]
     Active Substance: CITALOPRAM HYDROBROMIDE
     Indication: NEURALGIA
     Route: 065

REACTIONS (10)
  - Asthenia [Recovered/Resolved]
  - Hyperreflexia [Recovered/Resolved]
  - Depression [Recovered/Resolved]
  - Subdural haematoma [Recovered/Resolved]
  - Death [Fatal]
  - Dyskinesia [Recovered/Resolved]
  - Serotonin syndrome [Recovered/Resolved]
  - Anxiety [Recovered/Resolved]
  - Tachycardia [Recovered/Resolved]
  - Hyperthermia [Recovered/Resolved]
